FAERS Safety Report 4353128-9 (Version None)
Quarter: 2004Q2

REPORT INFORMATION
  Report Type: 
  Country: None (occurrence: None)
  Receive Date: 20040430
  Receipt Date: 20040206
  Transmission Date: 20050107
  Serious: No
  Sender: FDA-Public Use
  Company Number: 204639

PATIENT
  Age: 55 Year
  Sex: Female
  Weight: 82.1 kg

DRUGS (8)
  1. XOLAIR [Suspect]
     Indication: ASTHMA
     Dosage: SEE IMAGE
     Route: 058
  2. METAPROTERENOL (METAPROTERENOL SULFATE) [Concomitant]
  3. ATROVENT [Concomitant]
  4. FONASE (FLUTICASONE PROPIONATE) [Concomitant]
  5. LEVOXYL [Concomitant]
  6. PAXIL [Concomitant]
  7. CALCIUM (CALCIUM NOS) [Concomitant]
  8. TRAZODONE (TRAZODONE HYDROCHLORIDE) [Concomitant]

REACTIONS (1)
  - ARTHRALGIA [None]
